FAERS Safety Report 6547981-8 (Version None)
Quarter: 2010Q1

REPORT INFORMATION
  Report Type: 
  Country: None (occurrence: None)
  Receive Date: 20100124
  Receipt Date: 20091211
  Transmission Date: 20100710
  Serious: No
  Sender: FDA-Public Use
  Company Number: US-ALEXION-A200901068

PATIENT
  Age: 28 Year

DRUGS (1)
  1. SOLIRIS [Suspect]
     Dosage: UNK

REACTIONS (1)
  - HAEMOLYSIS [None]
